FAERS Safety Report 8410245-1 (Version None)
Quarter: 2012Q2

REPORT INFORMATION
  Report Type: 
  Country: None (occurrence: None)
  Receive Date: 20120605
  Receipt Date: 20120530
  Transmission Date: 20120825
  Serious: Yes (Hospitalization, Other)
  Sender: FDA-Public Use
  Company Number: PHEH2011US05389

PATIENT
  Sex: Female
  Weight: 44.91 kg

DRUGS (23)
  1. TALWIN [Concomitant]
     Indication: PAIN
     Dosage: 50 MG, TID
     Route: 048
     Dates: start: 20111006
  2. SEROQUEL [Concomitant]
     Dosage: 400 MG, QHS
     Route: 048
  3. SERTRALINE HYDROCHLORIDE [Concomitant]
     Dosage: 50 MG, QD
     Route: 048
  4. ALBUTEROL [Concomitant]
     Dosage: UNK UKN, QD
  5. HYDROXYZINE PAMOATE [Concomitant]
     Dosage: 25 MG, QD
     Route: 048
  6. TRAZODONE HCL [Concomitant]
     Dosage: 100 MG, QHS
     Route: 048
  7. GILENYA [Suspect]
     Dosage: 0.5 MG, QD
     Route: 048
     Dates: start: 20111101
  8. FLOVENT [Concomitant]
     Dosage: UNK UKN, UNK
  9. PROVIGIL [Concomitant]
     Dosage: 1 DF, BID
  10. LYRICA [Concomitant]
     Dosage: 50 MG, TID
     Route: 048
     Dates: start: 20110615
  11. CLONAZEPAM [Concomitant]
     Dosage: 0.5 MG, TID
     Route: 048
  12. NUEDEXTA [Concomitant]
     Dosage: UNK UKN, UNK
  13. ZONEGRAN [Concomitant]
     Dosage: 2 DF, BID
     Route: 048
  14. GILENYA [Suspect]
     Indication: MULTIPLE SCLEROSIS
     Dosage: 0.5 MG, QD
     Route: 048
     Dates: start: 20110622
  15. GILENYA [Suspect]
     Dosage: 0.5 MG, QD
     Route: 048
     Dates: start: 20120116
  16. ZANAFLEX [Concomitant]
     Dosage: 4 MG, TID
     Route: 048
  17. METHOCARBAMOL [Concomitant]
     Dosage: 500 MG, BID
     Route: 048
     Dates: start: 20110705
  18. MILNACIPRAN [Concomitant]
     Dosage: 12.5 MG, BID
     Route: 048
     Dates: start: 20110923
  19. PERCOCET [Concomitant]
     Dosage: 1 DF, TID
     Route: 048
     Dates: start: 20110926
  20. NEURONTIN [Concomitant]
     Dosage: 100 MG, TID
     Dates: end: 20120404
  21. NEURONTIN [Concomitant]
     Dosage: 2 DF, TID
  22. CELEBREX [Concomitant]
     Dosage: UNK UKN, UNK
  23. ZOLOFT [Concomitant]
     Dosage: 1 DF, QD

REACTIONS (32)
  - BALANCE DISORDER [None]
  - LAGOPHTHALMOS [None]
  - MUSCULAR WEAKNESS [None]
  - LIVER DISORDER [None]
  - BACK PAIN [None]
  - ATAXIA [None]
  - PAPILLOEDEMA [None]
  - CRYING [None]
  - CENTRAL NERVOUS SYSTEM LESION [None]
  - BLOOD PRESSURE ABNORMAL [None]
  - SPINAL OSTEOARTHRITIS [None]
  - BLOOD PRESSURE DECREASED [None]
  - STRESS [None]
  - HEADACHE [None]
  - DIZZINESS [None]
  - BACTERIAL INFECTION [None]
  - EYE SWELLING [None]
  - EYE PAIN [None]
  - STAPHYLOCOCCAL INFECTION [None]
  - SKIN WRINKLING [None]
  - BLADDER DYSFUNCTION [None]
  - WEIGHT DECREASED [None]
  - ASTHENIA [None]
  - LYMPHADENOPATHY [None]
  - VISUAL ACUITY REDUCED [None]
  - MIGRAINE [None]
  - LACRIMATION INCREASED [None]
  - NAUSEA [None]
  - VISION BLURRED [None]
  - MULTIPLE SCLEROSIS [None]
  - COORDINATION ABNORMAL [None]
  - NECK PAIN [None]
